FAERS Safety Report 8519550 (Version 3)
Quarter: 2015Q3

REPORT INFORMATION
  Report Type: Spontaneous
  Country: US (occurrence: US)
  Receive Date: 20120418
  Receipt Date: 20150721
  Transmission Date: 20151125
  Serious: No
  Sender: FDA-Public Use
  Company Number: US-ASTRAZENECA-2010SE59018

PATIENT
  Age: 64 Year
  Sex: Female
  Weight: 74.4 kg

DRUGS (11)
  1. XANAX [Concomitant]
     Active Substance: ALPRAZOLAM
  2. PRILOSEC OTC [Suspect]
     Active Substance: OMEPRAZOLE MAGNESIUM
     Route: 048
  3. DOXEPIN [Concomitant]
     Active Substance: DOXEPIN
  4. OMEPRAZOLE. [Suspect]
     Active Substance: OMEPRAZOLE
     Route: 048
  5. NAMENDA [Concomitant]
     Active Substance: MEMANTINE HYDROCHLORIDE
  6. NEXIUM [Suspect]
     Active Substance: ESOMEPRAZOLE MAGNESIUM
     Indication: GASTROOESOPHAGEAL REFLUX DISEASE
     Route: 048
     Dates: start: 2005
  7. PAXIL [Concomitant]
     Active Substance: PAROXETINE HYDROCHLORIDE
  8. ARICEPT [Concomitant]
     Active Substance: DONEPEZIL HYDROCHLORIDE
  9. VITAMIN B12 [Concomitant]
     Active Substance: CYANOCOBALAMIN
  10. NIASPAN [Concomitant]
     Active Substance: NIACIN
  11. FOLIC ACID. [Concomitant]
     Active Substance: FOLIC ACID

REACTIONS (16)
  - Incorrect drug administration duration [Unknown]
  - Weight decreased [Unknown]
  - Throat irritation [Unknown]
  - Drug ineffective [Unknown]
  - Oral discomfort [Unknown]
  - Tongue coated [Unknown]
  - Malaise [Unknown]
  - Tendon rupture [Unknown]
  - Condition aggravated [Unknown]
  - Glossodynia [Unknown]
  - Wrong patient received medication [Unknown]
  - Dyspepsia [Unknown]
  - Depression [Unknown]
  - Multiple fractures [Unknown]
  - Fall [Unknown]
  - Drug dose omission [Unknown]

NARRATIVE: CASE EVENT DATE: 2015
